FAERS Safety Report 10008833 (Version 1)
Quarter: 2014Q1

REPORT INFORMATION
  Report Type: Spontaneous
  Country: US (occurrence: US)
  Receive Date: 20140313
  Receipt Date: 20140313
  Transmission Date: 20141002
  Serious: Yes (Hospitalization)
  Sender: FDA-Public Use
  Company Number: US-INCYTE CORPORATION-2012IN000854

PATIENT
  Age: 79 Year
  Sex: Male

DRUGS (2)
  1. JAKAFI [Suspect]
     Dosage: UNK MG, UNK
     Route: 048
     Dates: start: 20120116
  2. JAKAFI [Suspect]
     Dosage: 10 MG, BID
     Route: 048

REACTIONS (1)
  - Transfusion [Unknown]
